FAERS Safety Report 5336734-4 (Version None)
Quarter: 2007Q2

REPORT INFORMATION
  Report Type: 
  Country: None (occurrence: None)
  Receive Date: 20070529
  Receipt Date: 20070522
  Transmission Date: 20071010
  Serious: Yes (Life-Threatening)
  Sender: FDA-Public Use
  Company Number: PHHO2007JP08822

PATIENT
  Sex: Female
  Weight: 45 kg

DRUGS (2)
  1. LOCHOL [Suspect]
     Indication: HYPERCHOLESTEROLAEMIA
     Dosage: 20 MG, QD
     Route: 048
     Dates: start: 20020204, end: 20070129
  2. HERBESSOR R [Suspect]
     Dosage: 100MG
     Dates: start: 19980401

REACTIONS (1)
  - LARGE INTESTINE CARCINOMA [None]
